FAERS Safety Report 5263376-1 (Version None)
Quarter: 2007Q1

REPORT INFORMATION
  Report Type: 
  Country: None (occurrence: None)
  Receive Date: 20070313
  Receipt Date: 20070307
  Transmission Date: 20070707
  Serious: Yes (Hospitalization)
  Sender: FDA-Public Use
  Company Number: FR-ELI_LILLY_AND_COMPANY-FR200703001318

PATIENT
  Age: 22 Year
  Sex: Male

DRUGS (4)
  1. ZYPREXA [Suspect]
     Indication: PSYCHOTIC DISORDER
     Dosage: 10 MG, 2/D
     Route: 048
     Dates: start: 20061208
  2. LOXAPAC [Concomitant]
     Indication: PSYCHOTIC DISORDER
     Dosage: 100 MG, DAILY (1/D)
     Route: 048
     Dates: start: 20061207
  3. RIVOTRIL [Concomitant]
     Dosage: 20 MG, 3/D
     Route: 048
  4. LEPTICUR [Concomitant]
     Indication: PARKINSONISM
     Dosage: 10 MG, OTHER
     Route: 030

REACTIONS (1)
  - NEUTROPENIA [None]
